FAERS Safety Report 21728315 (Version 6)
Quarter: 2023Q2

REPORT INFORMATION
  Report Type: Spontaneous
  Country: US (occurrence: US)
  Receive Date: 20221214
  Receipt Date: 20230623
  Transmission Date: 20230721
  Serious: Yes (Hospitalization, Other)
  Sender: FDA-Public Use
  Company Number: US-PFIZER INC-PV202200122719

PATIENT
  Age: 88 Year
  Sex: Male
  Weight: 79.37 kg

DRUGS (2)
  1. VYNDAMAX [Suspect]
     Active Substance: TAFAMIDIS
     Indication: Amyloidosis
     Dosage: 61 MG
     Dates: start: 20221205
  2. VYNDAMAX [Suspect]
     Active Substance: TAFAMIDIS
     Indication: Cardiac disorder
     Dosage: 20 MG, 1X/DAY
     Dates: start: 20221205

REACTIONS (5)
  - Heart transplant [Unknown]
  - Gait disturbance [Unknown]
  - Hypoacusis [Unknown]
  - Malaise [Unknown]
  - Confusional state [Unknown]

NARRATIVE: CASE EVENT DATE: 20221206
